FAERS Safety Report 4505073-3 (Version None)
Quarter: 2004Q4

REPORT INFORMATION
  Report Type: 
  Country: None (occurrence: None)
  Receive Date: 20041117
  Receipt Date: 20041117
  Transmission Date: 20050328
  Serious: Yes (Hospitalization)
  Sender: FDA-Public Use
  Company Number: None

PATIENT
  Age: 56 Year
  Sex: Male

DRUGS (8)
  1. NAPROXEN [Suspect]
     Indication: PAIN
     Dosage: (OTC ?)
  2. IBUPROFEN [Suspect]
  3. HYDROXYZINE [Concomitant]
  4. HYDROCHLOROTHIAZIDE [Concomitant]
  5. QUETIAPINE [Concomitant]
  6. OMEPRAZOLE [Concomitant]
  7. SERTRALINE HCL [Concomitant]
  8. RANITIDINE [Concomitant]

REACTIONS (2)
  - ANGINA PECTORIS [None]
  - GASTROINTESTINAL HAEMORRHAGE [None]
